FAERS Safety Report 9426277 (Version 1)
Quarter: 2013Q3

REPORT INFORMATION
  Report Type: Spontaneous
  Country: CH (occurrence: CH)
  Receive Date: 20130730
  Receipt Date: 20130730
  Transmission Date: 20140515
  Serious: Yes (Hospitalization)
  Sender: FDA-Public Use
  Company Number: CH-ASTRAZENECA-2013SE56244

PATIENT
  Age: 69 Year
  Sex: Male

DRUGS (8)
  1. CAPRELSA [Suspect]
     Indication: MEDULLARY THYROID CANCER
     Route: 048
     Dates: start: 201210
  2. EUTHYROX [Concomitant]
     Dosage: 100 UG IN THE MORNING, FASTING, AT LEAST 30 MIN. BEFORE BREAKFAST, NOT CHEWED, WITH SOME FLUID
  3. IMODIUM [Concomitant]
     Dosage: 2-1-1
  4. ZANIDIP [Concomitant]
  5. DOXIUM [Concomitant]
  6. COVERSUM N [Concomitant]
  7. MAGNESIUM DIASPORAL [Concomitant]
     Dosage: 300 MG, 12.4 MMOL, EVERY MORNING
  8. ATROVENT INHALER [Concomitant]
     Dosage: 0.25 MG / 2 ML MONODOSE, 1-1-1-1
     Route: 055

REACTIONS (5)
  - Syncope [Unknown]
  - Troponin T increased [Unknown]
  - Blood creatine phosphokinase increased [Unknown]
  - Pneumonia [Unknown]
  - Electrocardiogram QT prolonged [Unknown]
